FAERS Safety Report 16955069 (Version 1)
Quarter: 2019Q4

REPORT INFORMATION
  Report Type: Other
  Country: ES (occurrence: ES)
  Receive Date: 20191024
  Receipt Date: 20191024
  Transmission Date: 20200122
  Serious: Yes (Hospitalization)
  Sender: FDA-Public Use
  Company Number: ES-CELLTRION INC.-2019ES025723

PATIENT

DRUGS (4)
  1. IMUREL [AZATHIOPRINE] [Suspect]
     Active Substance: AZATHIOPRINE
     Indication: CROHN^S DISEASE
     Dosage: 50 MG, DAILY
     Route: 048
     Dates: start: 20190619, end: 20190725
  2. METILPREDNISOLONA [METHYLPREDNISOLONE] [Concomitant]
     Active Substance: METHYLPREDNISOLONE
     Indication: CROHN^S DISEASE
     Dosage: 40 MG EVERY CYCLE
     Route: 042
     Dates: start: 20190621
  3. INFLIXIMAB (UNKNOWN) [Suspect]
     Active Substance: INFLIXIMAB
     Indication: CROHN^S DISEASE
     Dosage: 165 MG EVERY CYCLE
     Route: 042
     Dates: start: 20190621
  4. RISPERIDONA [Suspect]
     Active Substance: RISPERIDONE
     Indication: ATTENTION DEFICIT/HYPERACTIVITY DISORDER
     Dosage: 0.5 ML EVERY 12 HOURS
     Route: 048
     Dates: start: 20190430, end: 20190725

REACTIONS (1)
  - Pancreatitis acute [Recovered/Resolved]

NARRATIVE: CASE EVENT DATE: 20190720
